FAERS Safety Report 17366893 (Version 1)
Quarter: 2020Q1

REPORT INFORMATION
  Report Type: Spontaneous
  Country: FR (occurrence: FR)
  Receive Date: 20200204
  Receipt Date: 20200204
  Transmission Date: 20200409
  Serious: Yes (Hospitalization, Other)
  Sender: FDA-Public Use
  Company Number: FR-VELOXIS PHARMACEUTICALS-2019VELFR-000168

PATIENT
  Age: 72 Year
  Sex: Female

DRUGS (46)
  1. ENVARSUS XR [Suspect]
     Active Substance: TACROLIMUS
     Indication: PRODUCT USED FOR UNKNOWN INDICATION
     Dosage: 1.5 MG, UNK
     Route: 065
     Dates: start: 20160220
  2. ENVARSUS XR [Suspect]
     Active Substance: TACROLIMUS
     Dosage: 4 MG, UNK
     Route: 065
     Dates: start: 20170716, end: 20171002
  3. ADVAGRAF [Suspect]
     Active Substance: TACROLIMUS
     Indication: PRODUCT USED FOR UNKNOWN INDICATION
     Dosage: 3 MG
     Route: 065
     Dates: start: 20140718, end: 20140912
  4. PROGRAF [Suspect]
     Active Substance: TACROLIMUS
     Dosage: 6 MG, UNK
     Route: 065
     Dates: start: 20180525, end: 20181012
  5. MYFORTIC [Suspect]
     Active Substance: MYCOPHENOLATE SODIUM
     Indication: LIVER TRANSPLANT
     Dosage: 180 MG, BID
     Route: 048
     Dates: start: 20140203
  6. MYFORTIC [Suspect]
     Active Substance: MYCOPHENOLATE SODIUM
     Dosage: 720 MG, UNK
     Route: 065
     Dates: start: 20180616
  7. SOLUPRED [PREDNISOLONE METASULFOBENZOATE SODIUM] [Concomitant]
     Active Substance: PREDNISOLONE SODIUM METAZOATE
     Dosage: 15 MG, UNK
     Route: 065
     Dates: start: 20171211, end: 20180216
  8. SOLUPRED [PREDNISOLONE METASULFOBENZOATE SODIUM] [Concomitant]
     Active Substance: PREDNISOLONE SODIUM METAZOATE
     Dosage: 5 MG, UNK
     Route: 065
     Dates: start: 20181013
  9. BACTRIM [Concomitant]
     Active Substance: SULFAMETHOXAZOLE\TRIMETHOPRIM
     Indication: PROPHYLAXIS
     Dosage: 100 MG, UNK
     Route: 065
     Dates: start: 201707
  10. PROGRAF [Suspect]
     Active Substance: TACROLIMUS
     Dosage: 2 MG, UNK
     Route: 065
     Dates: start: 20180407, end: 20180409
  11. SOLU-MEDROL [Concomitant]
     Active Substance: METHYLPREDNISOLONE SODIUM SUCCINATE
     Indication: PRODUCT USED FOR UNKNOWN INDICATION
     Dosage: 500 MG, UNK
     Route: 065
     Dates: start: 20170713, end: 20170713
  12. ENVARSUS XR [Suspect]
     Active Substance: TACROLIMUS
     Dosage: 2 MG, UNK
     Route: 065
     Dates: start: 20170702, end: 20170705
  13. ENVARSUS XR [Suspect]
     Active Substance: TACROLIMUS
     Dosage: 3 MG, UNK
     Route: 065
     Dates: start: 20170706, end: 20170707
  14. PROGRAF [Suspect]
     Active Substance: TACROLIMUS
     Dosage: 10 MG, UNK
     Route: 065
     Dates: start: 20180410, end: 20180411
  15. PROGRAF [Suspect]
     Active Substance: TACROLIMUS
     Dosage: 8 MG, UNK
     Route: 065
     Dates: start: 20180412, end: 20180412
  16. MYFORTIC [Suspect]
     Active Substance: MYCOPHENOLATE SODIUM
     Dosage: 1440 MG, UNK
     Route: 065
     Dates: start: 20140204, end: 20150410
  17. SOLUPRED [PREDNISOLONE METASULFOBENZOATE SODIUM] [Concomitant]
     Active Substance: PREDNISOLONE SODIUM METAZOATE
     Dosage: 10 MG, UNK
     Route: 065
     Dates: start: 20180322, end: 20180615
  18. CITALOPRAM [Concomitant]
     Active Substance: CITALOPRAM HYDROBROMIDE
     Indication: DEPRESSION
     Dosage: 10 MG, UNK
     Route: 065
     Dates: start: 20140912
  19. LANSOPRAZOLE. [Concomitant]
     Active Substance: LANSOPRAZOLE
     Indication: PROPHYLAXIS
     Dosage: 30 MG, UNK
     Route: 065
     Dates: start: 201707
  20. MYFORTIC [Suspect]
     Active Substance: MYCOPHENOLATE SODIUM
     Dosage: 720 MG, UNK
     Route: 065
     Dates: start: 20150411, end: 20170407
  21. MYFORTIC [Suspect]
     Active Substance: MYCOPHENOLATE SODIUM
     Dosage: 1440 MG, UNK
     Route: 065
     Dates: start: 20170702, end: 20180615
  22. ENVARSUS XR [Suspect]
     Active Substance: TACROLIMUS
     Dosage: 1 MG, UNK
     Route: 065
     Dates: start: 20170408, end: 20170701
  23. ENVARSUS XR [Suspect]
     Active Substance: TACROLIMUS
     Dosage: 4 MG, UNK
     Route: 065
     Dates: start: 20170708, end: 20170711
  24. ENVARSUS XR [Suspect]
     Active Substance: TACROLIMUS
     Dosage: 2 MG, UNK
     Route: 065
     Dates: start: 20180330, end: 20180330
  25. PROGRAF [Suspect]
     Active Substance: TACROLIMUS
     Dosage: 7 MG, UNK
     Route: 065
     Dates: start: 20180413, end: 20180524
  26. MYFORTIC [Suspect]
     Active Substance: MYCOPHENOLATE SODIUM
     Dosage: 360 MG, UNK
     Route: 065
     Dates: start: 20170408, end: 20170701
  27. PREDNISOLONE. [Concomitant]
     Active Substance: PREDNISOLONE
     Indication: IMMUNOSUPPRESSANT DRUG THERAPY
     Dosage: 10 MG, UNK
     Route: 065
     Dates: start: 20170713
  28. SOLUPRED [PREDNISOLONE METASULFOBENZOATE SODIUM] [Concomitant]
     Active Substance: PREDNISOLONE SODIUM METAZOATE
     Indication: PRODUCT USED FOR UNKNOWN INDICATION
     Dosage: 30 MG, UNK
     Route: 065
     Dates: start: 201707, end: 20170811
  29. SOLUPRED [PREDNISOLONE METASULFOBENZOATE SODIUM] [Concomitant]
     Active Substance: PREDNISOLONE SODIUM METAZOATE
     Dosage: 25 MG, UNK
     Route: 065
     Dates: start: 20170812, end: 20170915
  30. ACETYLSALICYLIC ACID [Concomitant]
     Active Substance: ASPIRIN
     Indication: PROPHYLAXIS
     Dosage: 100 MG, UNK
     Route: 065
     Dates: start: 20140211
  31. ENVARSUS XR [Suspect]
     Active Substance: TACROLIMUS
     Dosage: 5 MG, UNK
     Route: 065
     Dates: start: 20170712, end: 20170715
  32. ENVARSUS XR [Suspect]
     Active Substance: TACROLIMUS
     Dosage: 3 MG, UNK
     Route: 065
     Dates: start: 20171003, end: 20180216
  33. ENVARSUS XR [Suspect]
     Active Substance: TACROLIMUS
     Dosage: 2.25 MG, UNK
     Route: 065
     Dates: start: 20180323, end: 20180324
  34. TACROLIMUS. [Suspect]
     Active Substance: TACROLIMUS
     Indication: IMMUNOSUPPRESSANT DRUG THERAPY
     Dosage: 1.5 MG, UNK
     Route: 065
     Dates: start: 20160216
  35. PROGRAF [Suspect]
     Active Substance: TACROLIMUS
     Indication: PRODUCT USED FOR UNKNOWN INDICATION
     Dosage: 2 MG, UNK
     Route: 065
     Dates: start: 20140913, end: 20160219
  36. SOLUPRED [PREDNISOLONE METASULFOBENZOATE SODIUM] [Concomitant]
     Active Substance: PREDNISOLONE SODIUM METAZOATE
     Dosage: 20 MG, UNK
     Route: 065
     Dates: start: 20170916, end: 20171110
  37. SOLUPRED [PREDNISOLONE METASULFOBENZOATE SODIUM] [Concomitant]
     Active Substance: PREDNISOLONE SODIUM METAZOATE
     Dosage: 12.5 MG, UNK
     Route: 065
     Dates: start: 20180216, end: 20180321
  38. SOLUPRED [PREDNISOLONE METASULFOBENZOATE SODIUM] [Concomitant]
     Active Substance: PREDNISOLONE SODIUM METAZOATE
     Dosage: 7.5 MG, UNK
     Route: 065
     Dates: start: 20180616, end: 20181012
  39. ENVARSUS XR [Suspect]
     Active Substance: TACROLIMUS
     Dosage: 1.75 MG, UNK
     Route: 065
     Dates: start: 20180324, end: 20180329
  40. PROGRAF [Suspect]
     Active Substance: TACROLIMUS
     Dosage: 4 MG, UNK
     Route: 065
     Dates: start: 20181013
  41. ROVALCYTE [Suspect]
     Active Substance: VALGANCICLOVIR HYDROCHLORIDE
     Indication: LEUKOPENIA
     Dosage: UNK
     Route: 065
  42. SOLUPRED [PREDNISOLONE METASULFOBENZOATE SODIUM] [Concomitant]
     Active Substance: PREDNISOLONE SODIUM METAZOATE
     Dosage: 17.5 MG, UNK
     Route: 065
     Dates: start: 20171111, end: 20171210
  43. THYMOGLOBULINE [Concomitant]
     Active Substance: LAPINE T-LYMPHOCYTE IMMUNE GLOBULIN
     Indication: PRODUCT USED FOR UNKNOWN INDICATION
     Dosage: 75 MG, UNK
     Route: 065
     Dates: start: 20180405, end: 20180407
  44. ENVARSUS XR [Suspect]
     Active Substance: TACROLIMUS
     Dosage: 1.5 MG, UNK
     Route: 065
     Dates: start: 20180217, end: 20180322
  45. ENVARSUS XR [Suspect]
     Active Substance: TACROLIMUS
     Dosage: 4 MG, UNK
     Route: 065
     Dates: start: 20180331, end: 20180403
  46. ENVARSUS XR [Suspect]
     Active Substance: TACROLIMUS
     Dosage: 5 MG, UNK
     Route: 065
     Dates: start: 20180404, end: 20180406

REACTIONS (6)
  - Venoocclusive disease [Recovering/Resolving]
  - Pruritus [Recovered/Resolved]
  - Liver transplant rejection [Recovering/Resolving]
  - Hepatic enzyme increased [Recovering/Resolving]
  - Vanishing bile duct syndrome [Not Recovered/Not Resolved]
  - Leukopenia [Recovered/Resolved]

NARRATIVE: CASE EVENT DATE: 20170613
